FAERS Safety Report 5566142-2 (Version None)
Quarter: 2007Q4

REPORT INFORMATION
  Report Type: 
  Country: None (occurrence: None)
  Receive Date: 20071217
  Receipt Date: 20071217
  Transmission Date: 20080405
  Serious: Yes (Hospitalization)
  Sender: FDA-Public Use
  Company Number: None

PATIENT
  Sex: Male
  Weight: 78 kg

DRUGS (5)
  1. CETUXIMAB [Suspect]
     Indication: PANCREATIC CARCINOMA
     Dosage: 400MG/M2 IV WEEKLY
     Route: 042
     Dates: start: 20071128, end: 20071203
  2. OXALIPLATIN [Suspect]
     Indication: PANCREATIC CARCINOMA
     Dosage: 100 MG/M2 IV Q2WKS
     Route: 042
     Dates: start: 20071128, end: 20071128
  3. GEMCITABINE [Suspect]
     Indication: PANCREATIC CARCINOMA
     Dosage: 1000 MG/M2 Q2WEEKS
     Dates: start: 20071128, end: 20071128
  4. INDOCIN [Suspect]
     Indication: GOUT
     Dosage: 50 MG PO BID
     Route: 048
     Dates: start: 20071206, end: 20071207
  5. ALLOPURINOL [Concomitant]

REACTIONS (2)
  - DEHYDRATION [None]
  - LEUKOCYTOCLASTIC VASCULITIS [None]
